FAERS Safety Report 20214033 (Version 2)
Quarter: 2022Q1

REPORT INFORMATION
  Report Type: Spontaneous
  Country: US (occurrence: US)
  Receive Date: 20211221
  Receipt Date: 20220120
  Transmission Date: 20220424
  Serious: Yes (Other)
  Sender: FDA-Public Use
  Company Number: US-BAYER-2021A269727

PATIENT
  Age: 22 Year
  Sex: Male

DRUGS (2)
  1. KOGENATE FS [Suspect]
     Active Substance: ANTIHEMOPHILIC FACTOR, HUMAN RECOMBINANT
     Dosage: UNK
  2. KOGENATE FS [Suspect]
     Active Substance: ANTIHEMOPHILIC FACTOR, HUMAN RECOMBINANT
     Dosage: 3100 IU, BID, FACTOR USED BEFORE AND AFTER THE WISDOM TEETH EXTRACTION
     Dates: start: 20211213, end: 20211213

REACTIONS (1)
  - Wisdom teeth removal [None]

NARRATIVE: CASE EVENT DATE: 20211213
